FAERS Safety Report 8597234-1 (Version None)
Quarter: 2012Q3

REPORT INFORMATION
  Report Type: 
  Country: None (occurrence: None)
  Receive Date: 20120816
  Receipt Date: 20120807
  Transmission Date: 20120928
  Serious: No
  Sender: FDA-Public Use
  Company Number: US-BIOGENIDEC-2012BI027221

PATIENT
  Age: 46 Year
  Sex: Female

DRUGS (3)
  1. INTERFERON BETA-1A [Suspect]
     Indication: MULTIPLE SCLEROSIS
     Route: 030
     Dates: start: 20101201, end: 20120102
  2. VICODIN [Concomitant]
     Indication: PAIN
  3. SOMA [Concomitant]
     Indication: PAIN

REACTIONS (5)
  - INFLUENZA LIKE ILLNESS [None]
  - LETHARGY [None]
  - PAIN IN EXTREMITY [None]
  - MUSCULAR WEAKNESS [None]
  - BACK PAIN [None]
